FAERS Safety Report 20565762 (Version 3)
Quarter: 2022Q2

REPORT INFORMATION
  Report Type: Report from Study
  Country: US (occurrence: None)
  Receive Date: 20220308
  Receipt Date: 20220506
  Transmission Date: 20220721
  Serious: Yes (Hospitalization, Other)
  Sender: FDA-Public Use
  Company Number: US-Merck Healthcare KGaA-9304457

PATIENT
  Age: 74 Year
  Sex: Female

DRUGS (3)
  1. REBIF [Suspect]
     Active Substance: INTERFERON BETA-1A
     Indication: Multiple sclerosis
     Route: 058
     Dates: start: 200507
  2. REBIF [Suspect]
     Active Substance: INTERFERON BETA-1A
     Dosage: REBIJECT II/ MANUAL
     Route: 058
     Dates: start: 20210914, end: 20220211
  3. REBIF [Suspect]
     Active Substance: INTERFERON BETA-1A
     Route: 058
     Dates: start: 20220323

REACTIONS (9)
  - Ureterolithiasis [Recovered/Resolved]
  - Urinary tract infection [Recovered/Resolved]
  - Sepsis [Unknown]
  - Gastrointestinal infection [Recovering/Resolving]
  - Gastrointestinal inflammation [Recovering/Resolving]
  - Pseudomonas infection [Unknown]
  - Escherichia infection [Unknown]
  - Large intestine infection [Recovered/Resolved]
  - Product administration interrupted [Not Recovered/Not Resolved]

NARRATIVE: CASE EVENT DATE: 20220101
